FAERS Safety Report 17271910 (Version 1)
Quarter: 2020Q1

REPORT INFORMATION
  Report Type: Report from Study
  Country: None (occurrence: US)
  Receive Date: 20200115
  Receipt Date: 20200115
  Transmission Date: 20200409
  Serious: Yes (Hospitalization)
  Sender: FDA-Public Use
  Company Number: US-ABBVIE-19P-163-3175955-00

PATIENT
  Age: 61 Year
  Sex: Female

DRUGS (1)
  1. IMBRUVICA [Suspect]
     Active Substance: IBRUTINIB
     Indication: CHRONIC LYMPHOCYTIC LEUKAEMIA
     Route: 048
     Dates: start: 20181025

REACTIONS (8)
  - Gait disturbance [Unknown]
  - Dizziness [Unknown]
  - Vertigo [Unknown]
  - Nausea [Unknown]
  - Palpitations [Unknown]
  - Vomiting [Unknown]
  - Atrial fibrillation [Not Recovered/Not Resolved]
  - Hyperacusis [Unknown]

NARRATIVE: CASE EVENT DATE: 20191121
